FAERS Safety Report 6084262-3 (Version None)
Quarter: 2009Q1

REPORT INFORMATION
  Report Type: 
  Country: None (occurrence: None)
  Receive Date: 20090219
  Receipt Date: 20090212
  Transmission Date: 20090719
  Serious: Yes (Other)
  Sender: FDA-Public Use
  Company Number: PHHY2009GB02931

PATIENT
  Sex: Female
  Weight: 78.6 kg

DRUGS (6)
  1. ZOMETA [Suspect]
     Indication: BONE PAIN
     Dosage: 4 MG, UNK
     Route: 042
     Dates: start: 20090105
  2. CISPLATIN [Concomitant]
     Indication: GASTROOESOPHAGEAL CANCER
     Dosage: 108 MG, UNK
     Route: 042
     Dates: start: 20090105
  3. CAPECITABINE [Concomitant]
     Indication: GASTROOESOPHAGEAL CANCER
     Dosage: 2300 MG, UNK
     Route: 048
     Dates: start: 20090105, end: 20090126
  4. DEXAMETHASONE [Concomitant]
     Dosage: 8 MG, UNK
     Route: 048
     Dates: start: 20090105, end: 20090108
  5. APREPITANT [Concomitant]
     Dosage: 80 MG, UNK
     Route: 048
     Dates: start: 20090105, end: 20090107
  6. DOMPERIDONE [Concomitant]
     Dosage: 80 MG DAILY
     Dates: start: 20090105, end: 20090126

REACTIONS (10)
  - ALANINE AMINOTRANSFERASE INCREASED [None]
  - BONE PAIN [None]
  - CHILLS [None]
  - CONDITION AGGRAVATED [None]
  - INFLUENZA LIKE ILLNESS [None]
  - LIVER FUNCTION TEST ABNORMAL [None]
  - NAUSEA [None]
  - NEUTROPHIL COUNT DECREASED [None]
  - PYREXIA [None]
  - VOMITING [None]
